FAERS Safety Report 26201223 (Version 1)
Quarter: 2025Q4

REPORT INFORMATION
  Report Type: Spontaneous
  Country: US (occurrence: US)
  Receive Date: 20251226
  Receipt Date: 20251226
  Transmission Date: 20260117
  Serious: Yes (Other)
  Sender: ABBVIE
  Company Number: US-ABBVIE-6607209

PATIENT

DRUGS (1)
  1. REFRESH PLUS [Suspect]
     Active Substance: CARBOXYMETHYLCELLULOSE SODIUM
     Indication: Dry eye
     Dosage: ROA-OPHTHALMIC, REFRESH PLUS PRESERVATIVE FREE
     Route: 065

REACTIONS (2)
  - Cataract [Unknown]
  - Drug ineffective [Unknown]
